FAERS Safety Report 20616453 (Version 1)
Quarter: 2022Q1

REPORT INFORMATION
  Report Type: Spontaneous
  Country: DE (occurrence: DE)
  Receive Date: 20220321
  Receipt Date: 20220321
  Transmission Date: 20220424
  Serious: Yes (Other)
  Sender: FDA-Public Use
  Company Number: DE-TEVA-2022-DE-2004515

PATIENT
  Age: 44 Year
  Sex: Male

DRUGS (4)
  1. VALSARTAN [Suspect]
     Active Substance: VALSARTAN
     Indication: Product used for unknown indication
     Dosage: UNK
     Route: 065
  2. VALSARTAN [Suspect]
     Active Substance: VALSARTAN
     Dosage: UNK
     Route: 065
  3. VALSARTAN [Suspect]
     Active Substance: VALSARTAN
     Indication: Hypertension
     Dosage: 160 MILLIGRAM, QD (160 MILLIGRAM DAILY; 6 PACKAGES IN TOTAL MEANING 588 FILM-COATED TABLETS)
     Route: 048
     Dates: start: 20161007, end: 20180427
  4. VALSARTAN [Suspect]
     Active Substance: VALSARTAN
     Dosage: 80 MILLIGRAM, QD (80 MILLIGRAM DAILY)
     Route: 048
     Dates: start: 20160915

REACTIONS (14)
  - Quality of life decreased [Unknown]
  - Choking sensation [Unknown]
  - Restlessness [Unknown]
  - Thinking abnormal [Unknown]
  - Fear of disease [Unknown]
  - Headache [Unknown]
  - Anxiety disorder [Unknown]
  - Sleep disorder [Unknown]
  - Somatic symptom disorder [Unknown]
  - Migraine [Unknown]
  - Nausea [Unknown]
  - Dizziness [Unknown]
  - Exposure to toxic agent [Unknown]
  - Product impurity [Unknown]
